FAERS Safety Report 15572289 (Version 1)
Quarter: 2018Q4

REPORT INFORMATION
  Report Type: Spontaneous
  Country: US (occurrence: US)
  Receive Date: 20181031
  Receipt Date: 20181031
  Transmission Date: 20190205
  Serious: Yes (Other)
  Sender: FDA-Public Use
  Company Number: None

PATIENT
  Age: 40 Year
  Sex: Male
  Weight: 85.5 kg

DRUGS (4)
  1. MONTELUKAST 10 MG TAB (GENERIC FOR SINGULAIR AS PRESCRIBED) [Suspect]
     Active Substance: MONTELUKAST SODIUM
     Indication: HYPERSENSITIVITY
     Dosage: ?          QUANTITY:90 TABLET(S);?
     Route: 048
  2. MONTELUKAST 10 MG TAB (GENERIC FOR SINGULAIR AS PRESCRIBED) [Suspect]
     Active Substance: MONTELUKAST SODIUM
     Indication: COUGH
     Dosage: ?          QUANTITY:90 TABLET(S);?
     Route: 048
  3. MONTELUKAST 10 MG TAB (GENERIC FOR SINGULAIR AS PRESCRIBED) [Suspect]
     Active Substance: MONTELUKAST SODIUM
     Indication: NASOPHARYNGITIS
     Dosage: ?          QUANTITY:90 TABLET(S);?
     Route: 048
  4. MONTELUKAST 10 MG TAB (GENERIC FOR SINGULAIR AS PRESCRIBED) [Suspect]
     Active Substance: MONTELUKAST SODIUM
     Indication: LACRIMATION INCREASED
     Dosage: ?          QUANTITY:90 TABLET(S);?
     Route: 048

REACTIONS (9)
  - Recalled product administered [None]
  - Wrong product administered [None]
  - Therapy cessation [None]
  - Rash [None]
  - Respiratory rate increased [None]
  - Feeling cold [None]
  - Heart rate increased [None]
  - Stress [None]
  - Urine output decreased [None]

NARRATIVE: CASE EVENT DATE: 20180812
